FAERS Safety Report 5660672-0 (Version None)
Quarter: 2008Q1

REPORT INFORMATION
  Report Type: 
  Country: None (occurrence: None)
  Receive Date: 20080311
  Receipt Date: 20080305
  Transmission Date: 20080703
  Serious: Yes (Hospitalization)
  Sender: FDA-Public Use
  Company Number: IT-BAYER-200814519GPV

PATIENT
  Age: 81 Year
  Sex: Male

DRUGS (8)
  1. ACETYLSALICYLIC ACID SRT [Suspect]
     Indication: ANTICOAGULANT THERAPY
     Dosage: TOTAL DAILY DOSE: 100 MG  UNIT DOSE: 100 MG
     Route: 048
     Dates: start: 20050301, end: 20080302
  2. DICLOREUM (DICLOFENAC SODIUM) [Suspect]
     Indication: MUSCULOSKELETAL PAIN
     Dosage: TOTAL DAILY DOSE: 150 MG  UNIT DOSE: 150 MG
     Route: 048
     Dates: start: 20080224, end: 20080225
  3. AULIN (NIMESULIDE) [Suspect]
     Indication: MUSCULOSKELETAL PAIN
     Dosage: TOTAL DAILY DOSE: 100 MG  UNIT DOSE: 100 MG
     Route: 048
     Dates: start: 20080302, end: 20080302
  4. NITRO-DUR (NITROGLYCERINUM) [Concomitant]
     Indication: HYPERTENSIVE HEART DISEASE
     Route: 062
  5. ALLOPURINOL [Concomitant]
     Indication: DRUG USE FOR UNKNOWN INDICATION
     Dosage: TOTAL DAILY DOSE: 300 MG  UNIT DOSE: 300 MG
     Route: 048
  6. NORVASC [Concomitant]
     Indication: DRUG USE FOR UNKNOWN INDICATION
     Dosage: TOTAL DAILY DOSE: 10 MG  UNIT DOSE: 10 MG
     Route: 048
  7. BLOPRESID (CANDESARTAN CILEXETIL + HYDROCHLOROTHIAZIDE) [Concomitant]
     Indication: DRUG USE FOR UNKNOWN INDICATION
     Dosage: TOTAL DAILY DOSE: 1 DF  UNIT DOSE: 1 DF
     Route: 048
  8. CLEXANE 4000 (ENOXAPARIN SODIUM) [Concomitant]
     Indication: FEMUR FRACTURE
     Dosage: TOTAL DAILY DOSE: 4000 IU  UNIT DOSE: 4000 IU
     Route: 058

REACTIONS (1)
  - DUODENAL ULCER [None]
